FAERS Safety Report 9255109 (Version 1)
Quarter: 2013Q2

REPORT INFORMATION
  Report Type: Spontaneous
  Country: US (occurrence: None)
  Receive Date: 20130423
  Receipt Date: 20130423
  Transmission Date: 20140414
  Serious: Yes (Life-Threatening, Hospitalization)
  Sender: FDA-Public Use
  Company Number: None

PATIENT
  Age: 70 Year
  Sex: Female
  Weight: 74.39 kg

DRUGS (1)
  1. FORTEO [Suspect]

REACTIONS (7)
  - Wheezing [None]
  - Dyspnoea [None]
  - Muscle disorder [None]
  - Fall [None]
  - Contusion [None]
  - Contusion [None]
  - Contusion [None]
